FAERS Safety Report 4597624-8 (Version None)
Quarter: 2005Q1

REPORT INFORMATION
  Report Type: 
  Country: None (occurrence: None)
  Receive Date: 20050303
  Receipt Date: 20050215
  Transmission Date: 20050727
  Serious: Yes (Death)
  Sender: FDA-Public Use
  Company Number: US-JNJFOC-20041007310

PATIENT
  Sex: Female
  Weight: 74.39 kg

DRUGS (8)
  1. NATRECOR [Suspect]
     Dosage: UNSPECIFIED DOSE, OUTPATIENT INFUSIONS OF 5.5 HOURS
     Route: 042
  2. NATRECOR [Suspect]
     Dosage: UNSPECIFIED DOSE
     Route: 042
  3. NORVASC [Concomitant]
  4. INDERAL [Concomitant]
  5. SYNTHROID [Concomitant]
  6. ASPIRIN [Concomitant]
  7. LASIX [Concomitant]
  8. COUMADIN [Concomitant]

REACTIONS (7)
  - ASTHENIA [None]
  - DEATH [None]
  - DIARRHOEA [None]
  - FREQUENT BOWEL MOVEMENTS [None]
  - HYPERHIDROSIS [None]
  - MUSCLE SPASMS [None]
  - NAUSEA [None]
